FAERS Safety Report 5794077-9 (Version None)
Quarter: 2008Q2

REPORT INFORMATION
  Report Type: 
  Country: None (occurrence: None)
  Receive Date: 20080627
  Receipt Date: 20080618
  Transmission Date: 20081010
  Serious: Yes (Hospitalization, Other)
  Sender: FDA-Public Use
  Company Number: JP-PFIZER INC-2008045162

PATIENT
  Sex: Male
  Weight: 76 kg

DRUGS (2)
  1. CYTOTEC [Suspect]
     Indication: PYREXIA
     Route: 048
     Dates: start: 20080514, end: 20080519
  2. LOXONIN [Suspect]
     Indication: PYREXIA
     Route: 048
     Dates: start: 20080514, end: 20080519

REACTIONS (2)
  - GENERALISED ERYTHEMA [None]
  - OFF LABEL USE [None]
